FAERS Safety Report 6760454-2 (Version None)
Quarter: 2010Q2

REPORT INFORMATION
  Report Type: 
  Country: None (occurrence: None)
  Receive Date: 20100608
  Receipt Date: 20100528
  Transmission Date: 20101027
  Serious: Yes (Hospitalization)
  Sender: FDA-Public Use
  Company Number: PHHY2010BR35100

PATIENT
  Sex: Female

DRUGS (2)
  1. EXELON [Suspect]
     Indication: DEMENTIA ALZHEIMER'S TYPE
     Dosage: 9 MG, QD
     Route: 062
  2. EXELON [Suspect]
     Dosage: 9 MG, BID

REACTIONS (5)
  - DRUG DOSE OMISSION [None]
  - DRUG PRESCRIBING ERROR [None]
  - GAIT DISTURBANCE [None]
  - PNEUMONIA [None]
  - WEIGHT DECREASED [None]
